FAERS Safety Report 17100263 (Version 3)
Quarter: 2020Q1

REPORT INFORMATION
  Report Type: Spontaneous
  Country: BG (occurrence: BG)
  Receive Date: 20191202
  Receipt Date: 20200220
  Transmission Date: 20200409
  Serious: Yes (Death, Life-Threatening, Hospitalization, Other)
  Sender: FDA-Public Use
  Company Number: BG-AMGEN-BGRSP2019198965

PATIENT
  Age: 66 Year
  Sex: Female
  Weight: 60 kg

DRUGS (3)
  1. DEXAMETHASONE. [Suspect]
     Active Substance: DEXAMETHASONE
     Indication: PLASMA CELL MYELOMA
     Dosage: 20 MILLIGRAM, DAYS 1, 2, 8, 9
     Route: 042
     Dates: start: 20191113, end: 20191121
  2. KYPROLIS [Suspect]
     Active Substance: CARFILZOMIB
     Indication: PLASMA CELL MYELOMA
     Dosage: 20 MILLIGRAM/KILOGRAM, DAYS 1, 2, 8, 9
     Route: 042
     Dates: start: 20191113
  3. KYPROLIS [Suspect]
     Active Substance: CARFILZOMIB
     Dosage: 56 MILLIGRAM/KILOGRAM, DAYS 1, 2, 8, 9
     Route: 042
     Dates: end: 20191121

REACTIONS (19)
  - Platelet count decreased [Unknown]
  - White blood cell count decreased [Unknown]
  - Pleurisy [Unknown]
  - Lung infiltration [Unknown]
  - General physical health deterioration [Unknown]
  - Soft tissue swelling [Unknown]
  - Haemoglobin decreased [Unknown]
  - Cardiac amyloidosis [Not Recovered/Not Resolved]
  - Lymphoedema [Not Recovered/Not Resolved]
  - Anuria [Recovered/Resolved]
  - Death [Fatal]
  - Hypoalbuminaemia [Not Recovered/Not Resolved]
  - Lymphadenopathy [Unknown]
  - Splenomegaly [Unknown]
  - Pyrexia [Unknown]
  - Hepatic lesion [Unknown]
  - Tumour lysis syndrome [Not Recovered/Not Resolved]
  - Respiratory failure [Unknown]
  - Osteolysis [Unknown]

NARRATIVE: CASE EVENT DATE: 2019
